FAERS Safety Report 4970962-2 (Version None)
Quarter: 2006Q2

REPORT INFORMATION
  Report Type: 
  Country: None (occurrence: None)
  Receive Date: 20060411
  Receipt Date: 20060411
  Transmission Date: 20061013
  Serious: Yes (Other)
  Sender: FDA-Public Use
  Company Number: None

PATIENT
  Sex: Female

DRUGS (2)
  1. TRAVATAN [Suspect]
     Indication: OPEN ANGLE GLAUCOMA
     Dosage: OU  QHS ONE GTT
  2. BETIMOL [Suspect]
     Dosage: OU  QHS ONE GTT

REACTIONS (2)
  - CHRONIC OBSTRUCTIVE PULMONARY DISEASE [None]
  - PRURITUS [None]
